FAERS Safety Report 9703954 (Version 1)
Quarter: 2013Q4

REPORT INFORMATION
  Report Type: Spontaneous
  Country: US (occurrence: None)
  Receive Date: 20131121
  Receipt Date: 20131121
  Transmission Date: 20140711
  Serious: Yes (Hospitalization)
  Sender: FDA-Public Use
  Company Number: None

PATIENT
  Age: 22 Year
  Sex: Female
  Weight: 72.7 kg

DRUGS (1)
  1. INSULIN ASPART [Suspect]
     Indication: HYPERGLYCAEMIA
     Route: 058
     Dates: start: 20110907, end: 20110918

REACTIONS (1)
  - Blood glucose increased [None]
